FAERS Safety Report 23043770 (Version 1)
Quarter: 2023Q4

REPORT INFORMATION
  Report Type: Other
  Country: None (occurrence: TW)
  Receive Date: 20231009
  Receipt Date: 20231009
  Transmission Date: 20240110
  Serious: Yes (Life-Threatening, Hospitalization, Other)
  Sender: FDA-Public Use
  Company Number: TW-Owlpharma Consulting, Lda.-2146831

PATIENT
  Age: 61 Year
  Sex: Female

DRUGS (1)
  1. DEXMEDETOMIDINE [Suspect]
     Active Substance: DEXMEDETOMIDINE
     Indication: Product used for unknown indication

REACTIONS (6)
  - Bradycardia [Recovering/Resolving]
  - Hypothermia [Recovering/Resolving]
  - Mental status changes [Recovering/Resolving]
  - Loss of consciousness [Recovering/Resolving]
  - Somnolence [Unknown]
  - Physical assault [Recovering/Resolving]
